FAERS Safety Report 4385486-3 (Version None)
Quarter: 2004Q2

REPORT INFORMATION
  Report Type: 
  Country: None (occurrence: None)
  Receive Date: 20040622
  Receipt Date: 20040610
  Transmission Date: 20050107
  Serious: Yes (Life-Threatening, Hospitalization)
  Sender: FDA-Public Use
  Company Number: GB-2004-026766

PATIENT
  Age: 49 Year
  Sex: Female

DRUGS (1)
  1. ULTRAVIST 300 [Suspect]
     Indication: UROGRAPHY
     Dosage: 2 ML, INTRAVENOUS
     Route: 042
     Dates: start: 20040512, end: 20040512

REACTIONS (2)
  - CARDIO-RESPIRATORY ARREST [None]
  - CONTRAST MEDIA REACTION [None]
